FAERS Safety Report 5354515-2 (Version None)
Quarter: 2007Q2

REPORT INFORMATION
  Report Type: 
  Country: None (occurrence: None)
  Receive Date: 20070612
  Receipt Date: 20070531
  Transmission Date: 20071010
  Serious: Yes (Other)
  Sender: FDA-Public Use
  Company Number: US-ASTRAZENECA-2006UW08445

PATIENT
  Sex: Female
  Weight: 90 kg

DRUGS (6)
  1. SEROQUEL [Suspect]
     Indication: ANXIETY
     Route: 048
     Dates: start: 20010101, end: 20040801
  2. SEROQUEL [Suspect]
     Indication: DEPRESSION
     Route: 048
     Dates: start: 20010101, end: 20040801
  3. SEROQUEL [Suspect]
     Indication: INSOMNIA
     Route: 048
     Dates: start: 20010101, end: 20040801
  4. CLONAZEPAM [Concomitant]
     Indication: ANXIETY
  5. CLONAZEPAM [Concomitant]
     Indication: SLEEP DISORDER
  6. LEXAPRO [Concomitant]
     Indication: DEPRESSION

REACTIONS (4)
  - DIABETES MELLITUS [None]
  - GALLBLADDER OPERATION [None]
  - HYPERGLYCAEMIA [None]
  - PANCREATITIS [None]
